FAERS Safety Report 21494747 (Version 2)
Quarter: 2022Q4

REPORT INFORMATION
  Report Type: Report from Study
  Country: US (occurrence: US)
  Receive Date: 20221021
  Receipt Date: 20221121
  Transmission Date: 20230113
  Serious: Yes (Other)
  Sender: FDA-Public Use
  Company Number: US-ABBVIE-22K-163-4526031-00

PATIENT
  Age: 63 Year
  Sex: Male

DRUGS (2)
  1. IMBRUVICA [Suspect]
     Active Substance: IBRUTINIB
     Indication: Chronic lymphocytic leukaemia
     Route: 048
     Dates: start: 202009
  2. IMBRUVICA [Suspect]
     Active Substance: IBRUTINIB
     Indication: Chronic lymphocytic leukaemia
     Route: 048

REACTIONS (9)
  - Neoplasm malignant [Unknown]
  - Neck pain [Unknown]
  - Rash [Unknown]
  - Weight decreased [Unknown]
  - Staphylococcal infection [Recovering/Resolving]
  - Staphylococcal skin infection [Recovering/Resolving]
  - Lethargy [Unknown]
  - Diarrhoea [Unknown]
  - Cyst [Unknown]

NARRATIVE: CASE EVENT DATE: 20220929
